FAERS Safety Report 4530234-7 (Version None)
Quarter: 2004Q4

REPORT INFORMATION
  Report Type: 
  Country: None (occurrence: None)
  Receive Date: 20041216
  Receipt Date: 20041216
  Transmission Date: 20050328
  Serious: Yes (Hospitalization)
  Sender: FDA-Public Use
  Company Number: None

PATIENT
  Age: 77 Year
  Sex: Male
  Weight: 87 kg

DRUGS (19)
  1. METHOTREXATE [Suspect]
     Indication: ARTHRITIS
     Dosage: 7.5 MG PO Q WEEK
     Route: 048
     Dates: start: 19990817, end: 20040904
  2. ALBUTEROL INH SOLN [Concomitant]
  3. AMLODIPINE [Concomitant]
  4. DONEPEZIL HCL [Concomitant]
  5. FOLIC ACID [Concomitant]
  6. FUROSEMIDE [Concomitant]
  7. NPH INSULIN [Concomitant]
  8. ISOSORBIDE [Concomitant]
  9. LISINOPRIL [Concomitant]
  10. METOPROLOL TARTRATE [Concomitant]
  11. MULTI-VITAMIN [Concomitant]
  12. NITROGLYCERIN [Concomitant]
  13. PERMETHRIN CR [Concomitant]
  14. PREDNISONE [Concomitant]
  15. POTASSIUM CHLORIDE [Concomitant]
  16. SIMVASTATIN [Concomitant]
  17. SPIRONOLACTONE [Concomitant]
  18. THIAMINE [Concomitant]
  19. WARFARIN [Concomitant]

REACTIONS (5)
  - DRUG TOXICITY [None]
  - HYPOTENSION [None]
  - MEDICATION ERROR [None]
  - PANCYTOPENIA [None]
  - TACHYCARDIA [None]
